FAERS Safety Report 4283236-2 (Version None)
Quarter: 2004Q1

REPORT INFORMATION
  Report Type: 
  Country: None (occurrence: None)
  Receive Date: 20040129
  Receipt Date: 20030114
  Transmission Date: 20041129
  Serious: No
  Sender: FDA-Public Use
  Company Number: 2004AP00245

PATIENT
  Sex: Male

DRUGS (1)
  1. ZOLADEX [Suspect]
     Indication: PROSTATE CANCER
     Dosage: 10.8 MG Q3MO SQ

REACTIONS (3)
  - BLOOD ANTIDIURETIC HORMONE DECREASED [None]
  - BLOOD PRESSURE DECREASED [None]
  - NEPHROGENIC DIABETES INSIPIDUS [None]
